FAERS Safety Report 12029735 (Version 1)
Quarter: 2016Q1

REPORT INFORMATION
  Report Type: Report from Study
  Country: US (occurrence: US)
  Receive Date: 20160207
  Receipt Date: 20160207
  Transmission Date: 20160526
  Serious: No
  Sender: FDA-Public Use
  Company Number: US-ABBVIE-15K-163-1502106-00

PATIENT
  Sex: Female

DRUGS (1)
  1. HUMIRA [Suspect]
     Active Substance: ADALIMUMAB
     Indication: PRODUCT USED FOR UNKNOWN INDICATION
     Route: 058

REACTIONS (7)
  - Arthralgia [Unknown]
  - Muscular weakness [Unknown]
  - Tendonitis [Unknown]
  - Carpal tunnel syndrome [Unknown]
  - Impaired healing [Unknown]
  - Bleeding time prolonged [Unknown]
  - Myalgia [Unknown]
